FAERS Safety Report 21975232 (Version 1)
Quarter: 2023Q1

REPORT INFORMATION
  Report Type: Report from Study
  Country: US (occurrence: US)
  Receive Date: 20230210
  Receipt Date: 20230210
  Transmission Date: 20230418
  Serious: Yes (Other)
  Sender: FDA-Public Use
  Company Number: US-ABBVIE-4301205

PATIENT
  Sex: Male

DRUGS (1)
  1. VENCLEXTA [Suspect]
     Active Substance: VENETOCLAX
     Indication: Chronic lymphocytic leukaemia
     Dosage: ONSET DATE OF EVENT ADVERSE DRUG REACTION WAS 2023
     Route: 048
     Dates: start: 20230130

REACTIONS (3)
  - Leukaemia recurrent [Unknown]
  - Pain in extremity [Recovered/Resolved]
  - Adverse drug reaction [Unknown]
